FAERS Safety Report 22933787 (Version 2)
Quarter: 2024Q2

REPORT INFORMATION
  Report Type: Spontaneous
  Country: AU (occurrence: AU)
  Receive Date: 20230912
  Receipt Date: 20240401
  Transmission Date: 20240716
  Serious: Yes (Death, Other)
  Sender: FDA-Public Use
  Company Number: None

PATIENT
  Age: 62 Year
  Sex: Female

DRUGS (1)
  1. NUCYNTA [Suspect]
     Active Substance: TAPENTADOL HYDROCHLORIDE
     Indication: Product used for unknown indication
     Dosage: UNK UNK, UNKNOWN
     Route: 065

REACTIONS (5)
  - Arrhythmia [Fatal]
  - Toxicity to various agents [Fatal]
  - Chronic respiratory disease [Fatal]
  - Arteriosclerosis coronary artery [Fatal]
  - Accident [Fatal]

NARRATIVE: CASE EVENT DATE: 20210423
